FAERS Safety Report 16451916 (Version 1)
Quarter: 2019Q2

REPORT INFORMATION
  Report Type: Spontaneous
  Country: PT (occurrence: PT)
  Receive Date: 20190619
  Receipt Date: 20190619
  Transmission Date: 20190711
  Serious: Yes (Other)
  Sender: FDA-Public Use
  Company Number: PT-MYLANLABS-2019M1056271

PATIENT
  Age: 65 Year
  Sex: Female

DRUGS (3)
  1. EZETIMIBE. [Suspect]
     Active Substance: EZETIMIBE
     Indication: DYSLIPIDAEMIA
     Dosage: 10 MG (MAXIMUM TOLERATED DOSES)
     Route: 048
  2. NIACIN. [Suspect]
     Active Substance: NIACIN
     Indication: DYSLIPIDAEMIA
     Dosage: 1 GRAM (MAXIMUM TOLERATED DOSES)
  3. ROSUVASTATIN. [Suspect]
     Active Substance: ROSUVASTATIN
     Indication: DYSLIPIDAEMIA
     Dosage: 20 MILLIGRAM (MAXIMUM TOLERATED DOSES)

REACTIONS (1)
  - Drug ineffective [Unknown]
